FAERS Safety Report 23710567 (Version 1)
Quarter: 2024Q2

REPORT INFORMATION
  Report Type: Spontaneous
  Country: US (occurrence: US)
  Receive Date: 20240405
  Receipt Date: 20240405
  Transmission Date: 20240715
  Serious: No
  Sender: FDA-Public Use
  Company Number: US-MELINTA THERAPEUTICS, LLC-US-MLNT-24-00083

PATIENT
  Sex: Female

DRUGS (2)
  1. KIMYRSA [Suspect]
     Active Substance: ORITAVANCIN DIPHOSPHATE
     Indication: Product used for unknown indication
     Dosage: UNK
     Route: 041
     Dates: start: 202401, end: 202401
  2. KIMYRSA [Suspect]
     Active Substance: ORITAVANCIN DIPHOSPHATE
     Dosage: UNK
     Route: 041
     Dates: start: 20240207, end: 20240207

REACTIONS (3)
  - Back pain [Unknown]
  - Tremor [Unknown]
  - Multiple use of single-use product [Unknown]

NARRATIVE: CASE EVENT DATE: 20240207
